FAERS Safety Report 25068945 (Version 2)
Quarter: 2025Q2

REPORT INFORMATION
  Report Type: Report from Study
  Country: BR (occurrence: BR)
  Receive Date: 20250312
  Receipt Date: 20250407
  Transmission Date: 20250717
  Serious: Yes (Disabling, Other)
  Sender: TAKEDA
  Company Number: BR-TAKEDA-2025TUS024355

PATIENT
  Sex: Male

DRUGS (1)
  1. VEDOLIZUMAB [Suspect]
     Active Substance: VEDOLIZUMAB
     Indication: Crohn^s disease

REACTIONS (10)
  - Crohn^s disease [Unknown]
  - Physical disability [Unknown]
  - Abdominal discomfort [Unknown]
  - Spinal pain [Unknown]
  - Osteoarthritis [Unknown]
  - Intervertebral disc protrusion [Unknown]
  - Memory impairment [Unknown]
  - Dizziness [Unknown]
  - Blood pressure increased [Unknown]
  - Pain in extremity [Unknown]
